FAERS Safety Report 13906790 (Version 1)
Quarter: 2017Q3

REPORT INFORMATION
  Report Type: Spontaneous
  Country: FR (occurrence: FR)
  Receive Date: 20170825
  Receipt Date: 20170825
  Transmission Date: 20171127
  Serious: Yes (Life-Threatening, Hospitalization)
  Sender: FDA-Public Use
  Company Number: FR-PFIZER INC-2017366076

PATIENT
  Age: 61 Year
  Sex: Male
  Weight: 68 kg

DRUGS (4)
  1. MABTHERA [Suspect]
     Active Substance: RITUXIMAB
     Indication: LYMPHOMA
     Dosage: 670 MG, 1X/DAY ON D1 (SINGLE INTAKE)
     Route: 041
     Dates: start: 20151228, end: 20151228
  2. CYTARABINE SANDOZ [Suspect]
     Active Substance: CYTARABINE
     Indication: LYMPHOMA
     Dosage: 7200 MG, 1X/DAY ON D2 (SINGLE INTAKE)
     Route: 041
     Dates: start: 20151229, end: 20151229
  3. DEXAMETHASONE. [Concomitant]
     Active Substance: DEXAMETHASONE
     Indication: LYMPHOMA
     Dosage: UNK
     Dates: start: 20151228, end: 20151228
  4. OXALIPLATIN HOSPIRA [Suspect]
     Active Substance: OXALIPLATIN
     Indication: LYMPHOMA
     Dosage: 180 MG, 1X/DAY ON D1 (SINGLE INTAKE)
     Route: 041
     Dates: start: 20151228, end: 20151228

REACTIONS (1)
  - Febrile bone marrow aplasia [Recovered/Resolved]

NARRATIVE: CASE EVENT DATE: 20160105
